FAERS Safety Report 15226320 (Version 1)
Quarter: 2018Q3

REPORT INFORMATION
  Report Type: Spontaneous
  Country: US (occurrence: US)
  Receive Date: 20180706
  Receipt Date: 20180706
  Transmission Date: 20181010
  Serious: Yes (Hospitalization)
  Sender: FDA-Public Use
  Company Number: None

PATIENT
  Age: 36 Year
  Sex: Female

DRUGS (11)
  1. PROPRANOLOL [Concomitant]
     Active Substance: PROPRANOLOL HYDROCHLORIDE
     Dates: start: 20160613
  2. ZOFRAN [Concomitant]
     Active Substance: ONDANSETRON HYDROCHLORIDE
     Dates: start: 20160613
  3. ATIVAN [Concomitant]
     Active Substance: LORAZEPAM
     Dates: start: 20160613
  4. AMITRIPTYLIN [Concomitant]
     Active Substance: AMITRIPTYLINE
     Dates: start: 20180705
  5. B12 COMPLNCE KIT [Concomitant]
     Dates: start: 20160613
  6. BENTYL [Concomitant]
     Active Substance: DICYCLOMINE HYDROCHLORIDE
     Dates: start: 20160613
  7. DEPLIN [Concomitant]
     Active Substance: LEVOMEFOLATE CALCIUM
     Dates: start: 20160613
  8. DEPAKOTE [Concomitant]
     Active Substance: DIVALPROEX SODIUM
     Dates: start: 20180223
  9. TRAMADOL. [Concomitant]
     Active Substance: TRAMADOL
     Dates: start: 20160613
  10. PERCOCET [Concomitant]
     Active Substance: ACETAMINOPHEN\OXYCODONE HYDROCHLORIDE
     Dates: start: 20160613
  11. HUMIRA [Suspect]
     Active Substance: ADALIMUMAB
     Indication: CROHN^S DISEASE
     Dosage: ?          OTHER FREQUENCY:EVERY OTHER WEEK;?
     Route: 058
     Dates: start: 20140130

REACTIONS (3)
  - Surgery [None]
  - Abscess [None]
  - Depression [None]
